APPROVED DRUG PRODUCT: OPTIRAY 300
Active Ingredient: IOVERSOL
Strength: 64%
Dosage Form/Route: INJECTABLE;INJECTION
Application: N019710 | Product #004
Applicant: LIEBEL-FLARSHEIM CO LLC
Approved: Jan 22, 1992 | RLD: Yes | RS: Yes | Type: RX